FAERS Safety Report 7309029-7 (Version None)
Quarter: 2011Q1

REPORT INFORMATION
  Report Type: 
  Country: None (occurrence: None)
  Receive Date: 20110223
  Receipt Date: 20101202
  Transmission Date: 20110831
  Serious: No
  Sender: FDA-Public Use
  Company Number: US-BIOGENIDEC-2010BI042703

PATIENT
  Sex: Female

DRUGS (2)
  1. RECLAST [Concomitant]
     Indication: OSTEOPOROSIS
  2. TYSABRI [Suspect]
     Indication: MULTIPLE SCLEROSIS
     Route: 042
     Dates: start: 20070822

REACTIONS (2)
  - QUADRIPLEGIA [None]
  - MOBILITY DECREASED [None]
